FAERS Safety Report 10167314 (Version 2)
Quarter: 2014Q2

REPORT INFORMATION
  Report Type: Spontaneous
  Country: US (occurrence: US)
  Receive Date: 20140512
  Receipt Date: 20140519
  Transmission Date: 20141212
  Serious: Yes (Other)
  Sender: FDA-Public Use
  Company Number: US-PFIZER INC-2014129507

PATIENT
  Sex: Male

DRUGS (6)
  1. CHANTIX [Suspect]
     Indication: SMOKING CESSATION THERAPY
     Dosage: 0.5 MG, 1X/DAY
     Route: 048
     Dates: start: 20131208
  2. CHANTIX [Suspect]
     Dosage: 1 MG, 2X/DAY
     Route: 048
  3. HYDROCHLOROTHIAZIDE/LOSARTAN POTASSIUM [Suspect]
     Indication: HYPERTENSION
     Dosage: [LOSARTAN 50MG] / [HYDROCHLOROTHIAZIDE 12.5 MG], 1X/DAY
     Dates: end: 201405
  4. HYDROCHLOROTHIAZIDE\LOSARTAN POTASSIUM [Suspect]
     Dosage: [LOSARTAN 100MG] / [HYDROCHLOROTHIAZIDE 25MG], 1X/DAY
     Dates: start: 201405
  5. SPIRIVA [Concomitant]
     Indication: EMPHYSEMA
     Dosage: 18 UG, 1X/DAY
     Route: 055
  6. METFORMIN [Concomitant]
     Dosage: UNK

REACTIONS (1)
  - Blood pressure increased [Unknown]
